FAERS Safety Report 5480793-5 (Version None)
Quarter: 2007Q4

REPORT INFORMATION
  Report Type: 
  Country: None (occurrence: None)
  Receive Date: 20071009
  Receipt Date: 20071008
  Transmission Date: 20080405
  Serious: Yes (Other)
  Sender: FDA-Public Use
  Company Number: AU-ROXANE LABORATORIES, INC-2007-DE-05946GD

PATIENT

DRUGS (1)
  1. MORPHINE [Suspect]

REACTIONS (1)
  - ANAPHYLACTOID REACTION [None]
